FAERS Safety Report 5530505-1 (Version None)
Quarter: 2007Q4

REPORT INFORMATION
  Report Type: 
  Country: None (occurrence: None)
  Receive Date: 20071119
  Receipt Date: 20070927
  Transmission Date: 20080405
  Serious: No
  Sender: FDA-Public Use
  Company Number: TPA2007A02006

PATIENT
  Age: 66 Year
  Sex: Male

DRUGS (1)
  1. ROZEREM [Suspect]
     Indication: INSOMNIA
     Dosage: 8 MG, QHS PRN, PER ORAL
     Route: 048
     Dates: start: 20070901

REACTIONS (1)
  - DIZZINESS [None]
